APPROVED DRUG PRODUCT: SEROQUEL XR
Active Ingredient: QUETIAPINE FUMARATE
Strength: EQ 50MG BASE
Dosage Form/Route: TABLET, EXTENDED RELEASE;ORAL
Application: N022047 | Product #001 | TE Code: AB
Applicant: CHEPLAPHARM ARZNEIMITTEL GMBH
Approved: May 17, 2007 | RLD: Yes | RS: No | Type: RX